FAERS Safety Report 17355209 (Version 1)
Quarter: 2020Q1

REPORT INFORMATION
  Report Type: Report from Study
  Country: GR (occurrence: GR)
  Receive Date: 20200131
  Receipt Date: 20200131
  Transmission Date: 20200409
  Serious: Yes (Hospitalization)
  Sender: FDA-Public Use
  Company Number: GR-ARRAY-2016-03125

PATIENT
  Age: 82 Year
  Sex: Female
  Weight: 75 kg

DRUGS (5)
  1. SOTOVASTIN [Concomitant]
     Indication: HYPERLIPIDAEMIA
     Dosage: UNK
     Dates: start: 20130615
  2. FARMEMAX [Concomitant]
     Indication: OSTEOPOROSIS
     Dosage: UNK
     Dates: start: 20130615
  3. MEK162 [Suspect]
     Active Substance: BINIMETINIB
     Indication: MALIGNANT MELANOMA
     Dosage: 45 MG, BID
     Route: 048
     Dates: start: 20150831, end: 20160316
  4. PENOPRIL [Concomitant]
     Indication: HYPERTENSION
     Dosage: UNK
     Dates: start: 20050115
  5. LGX818 [Suspect]
     Active Substance: ENCORAFENIB
     Indication: MALIGNANT MELANOMA
     Dosage: 300 MG, QD
     Route: 048
     Dates: start: 20150831, end: 20160316

REACTIONS (1)
  - Vogt-Koyanagi-Harada disease [Recovered/Resolved with Sequelae]

NARRATIVE: CASE EVENT DATE: 20160317
